FAERS Safety Report 4636688-X (Version None)
Quarter: 2005Q2

REPORT INFORMATION
  Report Type: 
  Country: None (occurrence: None)
  Receive Date: 20050415
  Receipt Date: 20050413
  Transmission Date: 20051028
  Serious: Yes (Hospitalization)
  Sender: FDA-Public Use
  Company Number: PHBS2005TR05214

PATIENT
  Sex: Female

DRUGS (2)
  1. ANTIDIABETICS [Concomitant]
     Route: 048
  2. ZELMAC [Suspect]
     Indication: IRRITABLE BOWEL SYNDROME
     Dosage: 1 DF, QID
     Route: 048
     Dates: start: 20050404

REACTIONS (1)
  - ACUTE ABDOMEN [None]
